FAERS Safety Report 5073893-5 (Version None)
Quarter: 2006Q3

REPORT INFORMATION
  Report Type: 
  Country: None (occurrence: None)
  Receive Date: 20060808
  Receipt Date: 20060725
  Transmission Date: 20061208
  Serious: Yes (Death)
  Sender: FDA-Public Use
  Company Number: TR-BAYER-200613211GDS

PATIENT
  Age: 2 Year
  Sex: Female

DRUGS (6)
  1. DTIC-DOME [Suspect]
     Indication: RHABDOMYOSARCOMA
     Route: 065
  2. VINCRISTINE [Suspect]
     Indication: RHABDOMYOSARCOMA
     Route: 065
  3. CYCLOPHOSPHAMIDE [Suspect]
     Indication: RHABDOMYOSARCOMA
     Route: 065
  4. CISPLATIN [Suspect]
     Indication: RHABDOMYOSARCOMA
     Route: 065
  5. DACTINOMYCIN [Suspect]
     Indication: RHABDOMYOSARCOMA
     Route: 065
  6. ADRIAMYCIN PFS [Suspect]
     Indication: RHABDOMYOSARCOMA
     Route: 065

REACTIONS (1)
  - ACUTE MYELOID LEUKAEMIA [None]
